FAERS Safety Report 12768373 (Version 2)
Quarter: 2021Q3

REPORT INFORMATION
  Report Type: Spontaneous
  Country: US (occurrence: US)
  Receive Date: 20160921
  Receipt Date: 20210901
  Transmission Date: 20211014
  Serious: Yes (Other)
  Sender: FDA-Public Use
  Company Number: US-FRI-1000087646

PATIENT
  Sex: Female

DRUGS (2)
  1. CEFTAROLINE FOSAMIL UNK [Suspect]
     Active Substance: CEFTAROLINE FOSAMIL
     Dosage: 400 MG, Q8HR
  2. CEFTAROLINE FOSAMIL UNK [Suspect]
     Active Substance: CEFTAROLINE FOSAMIL
     Indication: STAPHYLOCOCCAL OSTEOMYELITIS
     Dosage: 600 MG, Q8HR

REACTIONS (3)
  - Renal impairment [Unknown]
  - Neutropenia [Recovered/Resolved]
  - Off label use [Recovered/Resolved]
